FAERS Safety Report 8150841-2 (Version None)
Quarter: 2012Q1

REPORT INFORMATION
  Report Type: 
  Country: None (occurrence: None)
  Receive Date: 20120220
  Receipt Date: 20120207
  Transmission Date: 20120608
  Serious: Yes (Hospitalization)
  Sender: FDA-Public Use
  Company Number: JP-ELI_LILLY_AND_COMPANY-JP201202003150

PATIENT
  Age: 85 Year
  Sex: Female

DRUGS (6)
  1. BROTIZOLAM [Concomitant]
     Route: 048
  2. CYMBALTA [Suspect]
     Indication: DEPRESSIVE SYMPTOM
     Dosage: 20 MG, EACH EVENING
     Route: 048
     Dates: start: 20120119, end: 20120203
  3. ARTANE [Concomitant]
  4. LANSOPRAZOLE [Concomitant]
  5. MAGMITT [Concomitant]
  6. LOXONIN [Concomitant]

REACTIONS (1)
  - DYSTONIA [None]
